FAERS Safety Report 24411974 (Version 2)
Quarter: 2024Q4

REPORT INFORMATION
  Report Type: Spontaneous
  Country: US (occurrence: US)
  Receive Date: 20241008
  Receipt Date: 20241107
  Transmission Date: 20250115
  Serious: No
  Sender: Kenvue
  Company Number: US-JNJFOC-20241018267

PATIENT
  Sex: Female

DRUGS (8)
  1. TYLENOL [Suspect]
     Active Substance: ACETAMINOPHEN
     Indication: Headache
     Route: 065
     Dates: start: 2024
  2. TYVASO [Concomitant]
     Active Substance: TREPROSTINIL
     Indication: Pulmonary arterial hypertension
     Dosage: 18 MICROGRAM
     Route: 045
     Dates: start: 202407, end: 202407
  3. TYVASO [Concomitant]
     Active Substance: TREPROSTINIL
     Dosage: 36 MICROGRAM
     Route: 045
     Dates: start: 202407, end: 202407
  4. TYVASO [Concomitant]
     Active Substance: TREPROSTINIL
     Dosage: 54 MICROGRAM
     Route: 045
     Dates: start: 202407, end: 2024
  5. TYVASO [Concomitant]
     Active Substance: TREPROSTINIL
     Dosage: 36 MICROGRAM
     Route: 045
     Dates: start: 2024, end: 2024
  6. TYVASO [Concomitant]
     Active Substance: TREPROSTINIL
     Dosage: 72 MICROGRAM
     Route: 045
     Dates: start: 2024
  7. TYVASO [Concomitant]
     Active Substance: TREPROSTINIL
     Route: 045
     Dates: start: 2024
  8. UPTRAVI [Concomitant]
     Active Substance: SELEXIPAG
     Indication: Product used for unknown indication
     Route: 065

REACTIONS (1)
  - Drug ineffective [Unknown]

NARRATIVE: CASE EVENT DATE: 20240101
